FAERS Safety Report 6690143-4 (Version None)
Quarter: 2010Q2

REPORT INFORMATION
  Report Type: 
  Country: None (occurrence: None)
  Receive Date: 20100421
  Receipt Date: 20100419
  Transmission Date: 20101027
  Serious: Yes (Death, Life-Threatening, Other)
  Sender: FDA-Public Use
  Company Number: PHHY2010JP24290

PATIENT
  Age: 40 Year
  Sex: Male

DRUGS (10)
  1. CYCLOSPORINE [Suspect]
     Indication: STEM CELL TRANSPLANT
  2. CYCLOSPORINE [Suspect]
     Indication: PROPHYLAXIS AGAINST GRAFT VERSUS HOST DISEASE
  3. MYCOPHENOLATE MOFETIL [Suspect]
     Indication: CHRONIC GRAFT VERSUS HOST DISEASE
     Dosage: 500-1000 MG/DAY
     Route: 048
  4. PREDNISOLONE [Suspect]
     Indication: CHRONIC GRAFT VERSUS HOST DISEASE
     Dosage: 1 MG/KG, UNK
  5. PREDNISOLONE [Suspect]
     Dosage: 0.3 MG/KG, UNK
  6. METHOTREXATE [Suspect]
     Indication: STEM CELL TRANSPLANT
  7. METHOTREXATE [Suspect]
     Indication: PROPHYLAXIS AGAINST GRAFT VERSUS HOST DISEASE
  8. CYTARABINE [Concomitant]
     Indication: STEM CELL TRANSPLANT
  9. CYCLOPHOSPHAMIDE [Concomitant]
     Indication: STEM CELL TRANSPLANT
  10. IRRADIATION [Concomitant]
     Indication: STEM CELL TRANSPLANT

REACTIONS (3)
  - ABSCESS INTESTINAL [None]
  - CHRONIC GRAFT VERSUS HOST DISEASE [None]
  - RETROPERITONEAL ABSCESS [None]
